FAERS Safety Report 6032210-4 (Version None)
Quarter: 2009Q1

REPORT INFORMATION
  Report Type: 
  Country: None (occurrence: None)
  Receive Date: 20090108
  Receipt Date: 20081224
  Transmission Date: 20090719
  Serious: No
  Sender: FDA-Public Use
  Company Number: US-B.I. PHARMACEUTICALS,INC./RIDGEFIELD-2008-BP-17886BP

PATIENT
  Age: 68 Year
  Sex: Male

DRUGS (4)
  1. COMBIVENT [Suspect]
     Indication: LUNG DISORDER
     Dosage: 2 PUFFS 2- 4 X DAILY (4-8 PUFFS DAILY)
     Route: 055
     Dates: start: 20081007
  2. COMBIVENT [Suspect]
     Indication: CHRONIC OBSTRUCTIVE PULMONARY DISEASE
  3. ARTHROTEC [Concomitant]
     Indication: ARTHRITIS
  4. ALTACE [Concomitant]
     Indication: HYPERTENSION

REACTIONS (2)
  - DYSGEUSIA [None]
  - DYSPNOEA [None]
